FAERS Safety Report 10280246 (Version 1)
Quarter: 2014Q3

REPORT INFORMATION
  Report Type: Other
  Country: GB (occurrence: GB)
  Receive Date: 20140707
  Receipt Date: 20140707
  Transmission Date: 20150326
  Serious: Yes (Disabling, Other)
  Sender: FDA-Public Use
  Company Number: GB-ASTELLAS-2014EU009393

PATIENT
  Age: 65 Year
  Sex: Female
  Weight: 65 kg

DRUGS (2)
  1. VESICARE [Suspect]
     Active Substance: SOLIFENACIN SUCCINATE
     Indication: POLLAKIURIA
     Dosage: STARTED APPROXIMATELY 5 YEARS AGO.
     Route: 048
  2. LAMICTAL [Concomitant]
     Active Substance: LAMOTRIGINE
     Indication: NEURALGIA
     Dosage: 100 MG IN THE MORNING AND 50 MG AT NIGHT. STARTED YEARS AGO.
     Route: 048

REACTIONS (2)
  - Optic nerve injury [Recovered/Resolved]
  - Angle closure glaucoma [Recovered/Resolved]
